FAERS Safety Report 13245301 (Version 1)
Quarter: 2017Q1

REPORT INFORMATION
  Report Type: Spontaneous
  Country: MA (occurrence: MA)
  Receive Date: 20170217
  Receipt Date: 20170217
  Transmission Date: 20170428
  Serious: Yes (Other)
  Sender: FDA-Public Use
  Company Number: MA-CHIESI USA INC.-MA-2017CHI000018

PATIENT
  Age: 30 Year
  Sex: Female
  Weight: 60 kg

DRUGS (11)
  1. VECURONIUM [Suspect]
     Active Substance: VECURONIUM BROMIDE
     Indication: INDUCTION OF ANAESTHESIA
     Dosage: 6 MG, UNK
  2. FENTANYL. [Concomitant]
     Active Substance: FENTANYL
     Indication: MAINTENANCE OF ANAESTHESIA
     Dosage: 150 ?G, UNK
  3. MAGNESIUM SULFATE. [Suspect]
     Active Substance: MAGNESIUM SULFATE
     Indication: HELLP SYNDROME
     Dosage: 1 G/HOUR
     Route: 042
  4. PROPOFOL. [Concomitant]
     Active Substance: PROPOFOL
     Indication: INDUCTION OF ANAESTHESIA
     Dosage: 150 MG, UNK
  5. NICARDIPINE HYDROCHLORIDE. [Suspect]
     Active Substance: NICARDIPINE HYDROCHLORIDE
     Dosage: 1 MG/HOUR
     Route: 042
  6. NITROUS OXIDE. [Concomitant]
     Active Substance: NITROUS OXIDE
     Indication: MAINTENANCE OF ANAESTHESIA
     Dosage: UNK
  7. NICARDIPINE HYDROCHLORIDE. [Suspect]
     Active Substance: NICARDIPINE HYDROCHLORIDE
     Indication: HYPERTENSION
     Dosage: 2 MG/HOUR
     Route: 042
  8. MAGNESIUM SULFATE. [Suspect]
     Active Substance: MAGNESIUM SULFATE
     Indication: PRE-ECLAMPSIA
     Dosage: 4 G, LOADING DOSE PERFUSED IN 30 MINS
     Route: 042
  9. MAGNESIUM SULFATE. [Suspect]
     Active Substance: MAGNESIUM SULFATE
     Dosage: 1 G/HOUR
     Route: 042
  10. ISOFLURANE. [Concomitant]
     Active Substance: ISOFLURANE
     Indication: MAINTENANCE OF ANAESTHESIA
     Dosage: 1-1.2 MAC, UNK
  11. AMOXICILLIN CLAVULANIC ACID [Concomitant]
     Active Substance: AMOXICILLIN\CLAVULANIC ACID
     Indication: ANTIBIOTIC PROPHYLAXIS
     Dosage: 35 MG/KG, UNK

REACTIONS (4)
  - Somnolence [Recovered/Resolved]
  - Neuromuscular block prolonged [Recovered/Resolved]
  - Drug interaction [Recovered/Resolved]
  - Exposure during pregnancy [Recovered/Resolved]
